FAERS Safety Report 8812197 (Version 1)
Quarter: 2012Q4

REPORT INFORMATION
  Report Type: 
  Country: FR (occurrence: FR)
  Receive Date: 20120927
  Receipt Date: 20120927
  Transmission Date: 20130627
  Serious: Yes (Hospitalization)
  Sender: FDA-Public Use
  Company Number: FR-ROCHE-1127202

PATIENT
  Age: 51 Year
  Sex: Male

DRUGS (3)
  1. APRANAX [Suspect]
     Indication: PRODUCT USED FOR UNKNOWN INDICATION
     Route: 048
     Dates: start: 20120222, end: 20120301
  2. COLCHICINE OPOCALCIUM [Concomitant]
     Indication: GOUT
     Route: 048
  3. IMODIUM [Concomitant]
     Indication: DIARRHOEA
     Route: 065

REACTIONS (1)
  - Gastritis erosive [Recovering/Resolving]
